FAERS Safety Report 24760950 (Version 2)
Quarter: 2025Q2

REPORT INFORMATION
  Report Type: Spontaneous
  Country: US (occurrence: US)
  Receive Date: 20241220
  Receipt Date: 20250513
  Transmission Date: 20250716
  Serious: No
  Sender: STALLERGENES
  Company Number: US-STALCOR-2024-AER-02965

PATIENT
  Age: 14 Year

DRUGS (8)
  1. CASHEW [Suspect]
     Active Substance: CASHEW
     Indication: Product used for unknown indication
     Dates: start: 20240103
  2. BRAZIL NUT [Suspect]
     Active Substance: BRAZIL NUT
     Indication: Product used for unknown indication
     Dates: start: 20240103
  3. PISTACHIO [Concomitant]
     Active Substance: PISTACHIO
     Indication: Product used for unknown indication
     Dates: start: 20240103
  4. HAZELNUT [Concomitant]
     Active Substance: CORYLUS AMERICANA POLLEN\HAZELNUT, UNSPECIFIED
     Indication: Product used for unknown indication
     Dates: start: 20240103
  5. COCONUT [Concomitant]
     Active Substance: COCONUT
     Indication: Product used for unknown indication
     Dates: start: 20240103
  6. PECAN [Concomitant]
     Active Substance: PECAN
     Indication: Product used for unknown indication
     Dates: start: 20240103
  7. ALMOND [Concomitant]
     Active Substance: ALMOND
     Indication: Product used for unknown indication
     Dates: start: 20240103
  8. ENGLISH WALNUT [Concomitant]
     Active Substance: ENGLISH WALNUT
     Indication: Product used for unknown indication
     Dates: start: 20240103

REACTIONS (1)
  - Drug ineffective [Unknown]

NARRATIVE: CASE EVENT DATE: 20240103
